FAERS Safety Report 13004543 (Version 6)
Quarter: 2017Q1

REPORT INFORMATION
  Report Type: Report from Study
  Country: NL (occurrence: NL)
  Receive Date: 20161207
  Receipt Date: 20170126
  Transmission Date: 20170428
  Serious: Yes (Hospitalization)
  Sender: FDA-Public Use
  Company Number: NL-ROCHE-1861656

PATIENT
  Age: 77 Year
  Sex: Male
  Weight: 82 kg

DRUGS (32)
  1. ATORVASTATIN [Concomitant]
     Active Substance: ATORVASTATIN
     Indication: BLOOD CHOLESTEROL
     Route: 065
     Dates: start: 2015
  2. OMEPRAZOLE. [Concomitant]
     Active Substance: OMEPRAZOLE
     Indication: PROPHYLAXIS
     Route: 065
     Dates: start: 2014
  3. XUMADOL [Concomitant]
     Route: 065
     Dates: start: 20161128
  4. LOPERAMIDE [Concomitant]
     Active Substance: LOPERAMIDE
     Route: 065
     Dates: start: 20161217
  5. INSULIN [Concomitant]
     Active Substance: INSULIN NOS
     Indication: DIABETES MELLITUS
     Route: 065
     Dates: start: 20161212, end: 20161217
  6. GLUCOSE/INSULIN [Concomitant]
     Indication: BLOOD POTASSIUM INCREASED
     Dosage: 10 UNITS INSULIN IN 50ML OF 50% GLUCOSE INFUSION
     Route: 065
     Dates: start: 20161129, end: 20161129
  7. ZOFRAN [Concomitant]
     Active Substance: ONDANSETRON HYDROCHLORIDE
     Indication: NAUSEA
     Route: 042
     Dates: start: 20170109, end: 20170111
  8. PRIMPERAN [Concomitant]
     Active Substance: METOCLOPRAMIDE HYDROCHLORIDE
     Indication: NAUSEA
     Route: 042
     Dates: start: 20170109, end: 20170112
  9. METFORMIN [Concomitant]
     Active Substance: METFORMIN HYDROCHLORIDE
     Indication: DIABETES MELLITUS
     Route: 065
     Dates: start: 2015
  10. OXYNORM [Concomitant]
     Active Substance: OXYCODONE HYDROCHLORIDE
     Indication: PAIN
     Route: 065
     Dates: start: 201610, end: 20170119
  11. LOPERAMIDE [Concomitant]
     Active Substance: LOPERAMIDE
     Route: 065
     Dates: start: 20161216, end: 20161219
  12. ATEZOLIZUMAB [Suspect]
     Active Substance: ATEZOLIZUMAB
     Indication: NON-SMALL CELL LUNG CANCER STAGE IV
     Dosage: MOST RECENT DOSE PRIOR TO THE ONSET OF THE FIRST EPISODE OF RENAL IMPAIRMENT: 22/NOV/2016?MOST RECEN
     Route: 042
     Dates: start: 20161122
  13. CARBOPLATIN. [Suspect]
     Active Substance: CARBOPLATIN
     Indication: NON-SMALL CELL LUNG CANCER STAGE IV
     Dosage: AUC OF 6 MG/ML/MIN (PER PROTOCOL)?MOST RECENT DOSE PRIOR TO ONSET OF THE FIRST EPISODE OF RENAL IMPA
     Route: 042
     Dates: start: 20161122
  14. CANNABIS OIL [Concomitant]
     Route: 065
     Dates: start: 20161108
  15. AMITRIPTYLINE [Concomitant]
     Active Substance: AMITRIPTYLINE
     Indication: PARAESTHESIA
     Route: 065
     Dates: start: 20161128
  16. RESONIUM [Concomitant]
     Active Substance: SODIUM POLYSTYRENE SULFONATE
     Indication: HYPERKALAEMIA
     Route: 065
     Dates: start: 20161217, end: 20161217
  17. RESONIUM [Concomitant]
     Active Substance: SODIUM POLYSTYRENE SULFONATE
     Dosage: 30 GRAM CLUSTER
     Route: 065
     Dates: start: 20170108, end: 20170108
  18. ZOFRAN [Concomitant]
     Active Substance: ONDANSETRON HYDROCHLORIDE
     Route: 048
     Dates: start: 20170108, end: 20170109
  19. LERCANIDIPINE [Concomitant]
     Active Substance: LERCANIDIPINE
     Indication: HYPERTENSION
     Route: 065
     Dates: start: 2014, end: 201612
  20. LOPERAMIDE [Concomitant]
     Active Substance: LOPERAMIDE
     Route: 065
     Dates: start: 20161216, end: 20161216
  21. PRIMPERAN [Concomitant]
     Active Substance: METOCLOPRAMIDE HYDROCHLORIDE
     Route: 065
     Dates: start: 20161217
  22. ENALAPRIL [Concomitant]
     Active Substance: ENALAPRIL
     Indication: HYPERTENSION
     Route: 065
     Dates: start: 2014
  23. FENTANYL. [Concomitant]
     Active Substance: FENTANYL
     Indication: PAIN
     Route: 065
     Dates: start: 201610
  24. NUTRITIONAL DRINK [Concomitant]
     Indication: DECREASED APPETITE
     Route: 065
     Dates: start: 20161012
  25. RESONIUM [Concomitant]
     Active Substance: SODIUM POLYSTYRENE SULFONATE
     Indication: BLOOD POTASSIUM INCREASED
     Route: 065
     Dates: start: 20161128, end: 20161212
  26. ZYLORIC [Concomitant]
     Active Substance: ALLOPURINOL
     Indication: ARTHRITIS
     Route: 065
     Dates: start: 201505
  27. RESONIUM [Concomitant]
     Active Substance: SODIUM POLYSTYRENE SULFONATE
     Route: 065
     Dates: start: 20170102, end: 20170102
  28. LOPERAMIDE [Concomitant]
     Active Substance: LOPERAMIDE
     Indication: DIARRHOEA
     Route: 065
     Dates: start: 20161128, end: 20161130
  29. LOPERAMIDE [Concomitant]
     Active Substance: LOPERAMIDE
     Route: 065
     Dates: start: 20170109, end: 20170110
  30. PRIMPERAN [Concomitant]
     Active Substance: METOCLOPRAMIDE HYDROCHLORIDE
     Route: 065
     Dates: start: 20161128
  31. PACLITAXEL. [Suspect]
     Active Substance: PACLITAXEL
     Indication: NON-SMALL CELL LUNG CANCER STAGE IV
     Dosage: DOSE PER PROTOCOL?MOST RECENT DOSE PRIOR TO ONSET OF FIRST EPISODE OF RENAL IMPAIRMENT: 22/NOV/2016
     Route: 042
     Dates: start: 20161122
  32. XUMADOL [Concomitant]
     Indication: PAIN
     Route: 065
     Dates: start: 201610

REACTIONS (1)
  - Renal impairment [Recovered/Resolved]

NARRATIVE: CASE EVENT DATE: 20161122
